FAERS Safety Report 10804483 (Version 1)
Quarter: 2015Q1

REPORT INFORMATION
  Report Type: Report from Study
  Country: US (occurrence: US)
  Receive Date: 20150217
  Receipt Date: 20150217
  Transmission Date: 20150721
  Serious: No
  Sender: FDA-Public Use
  Company Number: US-ABBVIE-14K-163-1261383-00

PATIENT
  Age: 57 Year
  Sex: Male

DRUGS (14)
  1. LOSARTAN/HCTZ GT [Concomitant]
     Indication: HYPERTENSION
     Dosage: 100/25 MG
  2. FOLIC ACID. [Concomitant]
     Active Substance: FOLIC ACID
     Indication: RHEUMATOID ARTHRITIS
  3. METHOTREXATE [Concomitant]
     Active Substance: METHOTREXATE
     Indication: RHEUMATOID ARTHRITIS
  4. ACETAMINOPHEN. [Concomitant]
     Active Substance: ACETAMINOPHEN
     Indication: PAIN
     Dosage: AT HOUR OF SLEEP
  5. OTC SINUS MEDICATION [Concomitant]
     Indication: SINUS DISORDER
  6. MUCINEX [Concomitant]
     Active Substance: GUAIFENESIN
     Indication: SINUS DISORDER
  7. VITAMIN B12 [Concomitant]
     Active Substance: CYANOCOBALAMIN
     Indication: PRODUCT USED FOR UNKNOWN INDICATION
  8. MULTIPLE VITAMINS [Concomitant]
     Active Substance: VITAMINS
     Indication: PRODUCT USED FOR UNKNOWN INDICATION
  9. PREDNISONE. [Concomitant]
     Active Substance: PREDNISONE
     Dates: start: 20140702
  10. PREDNISONE. [Concomitant]
     Active Substance: PREDNISONE
     Indication: RHEUMATOID ARTHRITIS
  11. ANTIHISTAMINES [Concomitant]
     Active Substance: ANTIHISTAMINES NOS
     Indication: DERMATITIS ALLERGIC
  12. HUMIRA [Suspect]
     Active Substance: ADALIMUMAB
     Indication: RHEUMATOID ARTHRITIS
     Dates: start: 20140402
  13. PREDNISONE. [Concomitant]
     Active Substance: PREDNISONE
     Dates: start: 201406
  14. NIACIN. [Concomitant]
     Active Substance: NIACIN
     Indication: BLOOD CHOLESTEROL INCREASED
     Dosage: AT HOUR OF SLEEP

REACTIONS (7)
  - Pain in extremity [Unknown]
  - Musculoskeletal stiffness [Recovered/Resolved]
  - Rheumatoid arthritis [Recovered/Resolved]
  - Peripheral swelling [Recovered/Resolved]
  - Pain in extremity [Recovered/Resolved]
  - Arthralgia [Not Recovered/Not Resolved]
  - Rheumatoid arthritis [Recovered/Resolved]

NARRATIVE: CASE EVENT DATE: 20140606
